FAERS Safety Report 17533207 (Version 1)
Quarter: 2020Q1

REPORT INFORMATION
  Report Type: Report from Study
  Country: CA (occurrence: CA)
  Receive Date: 20200312
  Receipt Date: 20200312
  Transmission Date: 20200409
  Serious: Yes (Other)
  Sender: FDA-Public Use
  Company Number: CA-PFIZER INC-2020106153

PATIENT
  Age: 36 Year
  Sex: Female

DRUGS (1)
  1. METHOTREXATE SODIUM. [Suspect]
     Active Substance: METHOTREXATE SODIUM
     Dosage: 25 MG, WEEKLY
     Route: 058

REACTIONS (15)
  - Respiratory rate increased [Unknown]
  - Musculoskeletal pain [Unknown]
  - Product use issue [Unknown]
  - Ligament pain [Unknown]
  - Constipation [Unknown]
  - Spondyloarthropathy [Unknown]
  - Tremor [Unknown]
  - Back pain [Unknown]
  - Pain in extremity [Unknown]
  - Psoriatic arthropathy [Unknown]
  - Off label use [Unknown]
  - Arthralgia [Unknown]
  - Musculoskeletal stiffness [Unknown]
  - Colitis [Unknown]
  - Diarrhoea [Unknown]
